FAERS Safety Report 9705961 (Version 2)
Quarter: 2013Q4

REPORT INFORMATION
  Report Type: Spontaneous
  Country: US (occurrence: US)
  Receive Date: 20131122
  Receipt Date: 20131217
  Transmission Date: 20140711
  Serious: Yes (Death, Hospitalization)
  Sender: FDA-Public Use
  Company Number: US-GLAXOSMITHKLINE-A1050827A

PATIENT
  Age: 49 Year
  Sex: Male
  Weight: 88.6 kg

DRUGS (1)
  1. VOTRIENT [Suspect]
     Indication: PRODUCT USED FOR UNKNOWN INDICATION
     Dosage: 800MG PER DAY
     Route: 048
     Dates: start: 20130621

REACTIONS (5)
  - Renal cancer stage IV [Unknown]
  - Renal cancer metastatic [Unknown]
  - Metastases to lung [Unknown]
  - Metastases to chest wall [Unknown]
  - Respiratory failure [Fatal]
